FAERS Safety Report 22525823 (Version 6)
Quarter: 2023Q2

REPORT INFORMATION
  Report Type: Report from Study
  Country: US (occurrence: None)
  Receive Date: 20230606
  Receipt Date: 20230629
  Transmission Date: 20230721
  Serious: Yes (Hospitalization)
  Sender: FDA-Public Use
  Company Number: US-Eisai Medical Research-EC-2023-141746

PATIENT
  Age: 71 Year
  Sex: Male
  Weight: 66.7 kg

DRUGS (14)
  1. LENVATINIB [Suspect]
     Active Substance: LENVATINIB
     Indication: Clear cell renal cell carcinoma
     Dosage: STARTING DOSE: 20 MG, FLUCTUATED DOSAGE
     Route: 048
     Dates: start: 20221115, end: 20230527
  2. LENVATINIB [Suspect]
     Active Substance: LENVATINIB
     Route: 048
     Dates: start: 20230613
  3. PEMBROLIZUMAB [Suspect]
     Active Substance: PEMBROLIZUMAB
     Indication: Clear cell renal cell carcinoma
     Route: 041
     Dates: start: 20221115, end: 20230502
  4. PEMBROLIZUMAB [Suspect]
     Active Substance: PEMBROLIZUMAB
     Route: 041
     Dates: start: 20230613
  5. COD LIVER OIL [Concomitant]
     Active Substance: COD LIVER OIL
     Dates: start: 201710
  6. VIAGRA [Concomitant]
     Active Substance: SILDENAFIL CITRATE
     Dates: start: 202101
  7. POTASSIUM PHOSPHATE DIBASIC;POTASSIUM PHOSPHATE MONOBASIC;SODIUM PHOSP [Concomitant]
     Dates: start: 20221115
  8. FAMOTIDINE [Concomitant]
     Active Substance: FAMOTIDINE
     Dates: start: 20221115
  9. PROCHLORPERAZINE [Concomitant]
     Active Substance: PROCHLORPERAZINE
     Dates: start: 20221122
  10. ELIQUIS [Concomitant]
     Active Substance: APIXABAN
     Dates: start: 20221208
  11. METOPROLOL [Concomitant]
     Active Substance: METOPROLOL
     Dates: start: 20221208
  12. AMLODIPINE\VALSARTAN [Concomitant]
     Active Substance: AMLODIPINE\VALSARTAN
     Dates: start: 20230114
  13. NIFEDIPINE [Concomitant]
     Active Substance: NIFEDIPINE
     Dates: start: 20230217
  14. AMOXICILLIN [Concomitant]
     Active Substance: AMOXICILLIN
     Dates: start: 20230507, end: 20230520

REACTIONS (1)
  - Cholelithiasis [Recovered/Resolved]

NARRATIVE: CASE EVENT DATE: 20230528
